FAERS Safety Report 19178812 (Version 1)
Quarter: 2021Q2

REPORT INFORMATION
  Report Type: Spontaneous
  Country: US (occurrence: US)
  Receive Date: 20210423
  Receipt Date: 20210423
  Transmission Date: 20210717
  Serious: No
  Sender: FDA-Public Use
  Company Number: None

PATIENT
  Age: 52 Year
  Sex: Female

DRUGS (1)
  1. TREMFYA [Suspect]
     Active Substance: GUSELKUMAB
     Indication: PSORIASIS
     Dosage: ?          OTHER FREQUENCY:WEEK 4, 8 WEEKS ;?
     Route: 058
     Dates: start: 202101

REACTIONS (4)
  - Incorrect dose administered [None]
  - Wrong technique in product usage process [None]
  - Device defective [None]
  - Product dose omission issue [None]

NARRATIVE: CASE EVENT DATE: 20210401
